FAERS Safety Report 7092367-3 (Version None)
Quarter: 2010Q4

REPORT INFORMATION
  Report Type: 
  Country: None (occurrence: None)
  Receive Date: 20101110
  Receipt Date: 20101101
  Transmission Date: 20110411
  Serious: Yes (Hospitalization)
  Sender: FDA-Public Use
  Company Number: US-BIOGENIDEC-2010BI038235

PATIENT
  Age: 28 Year
  Sex: Female

DRUGS (1)
  1. TYSABRI [Suspect]
     Indication: MULTIPLE SCLEROSIS
     Route: 042
     Dates: start: 20090129

REACTIONS (5)
  - DRUG DELIVERY DEVICE IMPLANTATION [None]
  - MEDICAL DEVICE COMPLICATION [None]
  - PHARYNGITIS [None]
  - PYREXIA [None]
  - URINARY TRACT INFECTION [None]
